FAERS Safety Report 9356589 (Version 2)
Quarter: 2013Q2

REPORT INFORMATION
  Report Type: Spontaneous
  Country: US (occurrence: US)
  Receive Date: 20130619
  Receipt Date: 20130624
  Transmission Date: 20140414
  Serious: No
  Sender: FDA-Public Use
  Company Number: US-TEVA-408271USA

PATIENT
  Age: 66 Year
  Sex: Male
  Weight: 104.42 kg

DRUGS (23)
  1. NUVIGIL [Suspect]
     Indication: FATIGUE
     Route: 048
  2. PROVIGIL [Suspect]
     Indication: FATIGUE
     Route: 048
  3. TESTIM [Suspect]
     Dosage: 1% (50 MG); 30 TUBES: 5 G PER TUBE
     Route: 061
     Dates: start: 201304
  4. CONCERTA [Suspect]
     Indication: FATIGUE
  5. MAGNESIUM [Suspect]
     Indication: MINERAL SUPPLEMENTATION
  6. PROPRANOLOL [Concomitant]
     Indication: HYPERTENSION
  7. BENAZEPRIL [Concomitant]
     Indication: HYPERTENSION
  8. PROZAC [Concomitant]
     Indication: DEPRESSION
  9. BUPROPION [Concomitant]
     Indication: DEPRESSION
     Dates: start: 20130520
  10. OMEPRAZOLE [Concomitant]
  11. RANITIDINE [Concomitant]
  12. VITAMIN B [Concomitant]
  13. PRADAXA [Concomitant]
     Indication: ANTICOAGULANT THERAPY
  14. METOPROLOL [Concomitant]
     Indication: HYPERTENSION
  15. AMBIEN [Concomitant]
     Indication: INSOMNIA
  16. TERAZOSIN [Concomitant]
  17. OXYBUTYNIN [Concomitant]
  18. FERROUS SULFATE [Concomitant]
     Indication: MINERAL SUPPLEMENTATION
  19. MULTIVITAMIN [Concomitant]
     Indication: VITAMIN SUPPLEMENTATION
  20. PROBIOTIC [Concomitant]
     Indication: SUPPLEMENTATION THERAPY
  21. OMEGA 3 [Concomitant]
     Indication: VITAMIN SUPPLEMENTATION
  22. COENZYME Q10 [Concomitant]
     Indication: VITAMIN SUPPLEMENTATION
  23. CALCIUM [Concomitant]
     Indication: MINERAL SUPPLEMENTATION

REACTIONS (2)
  - Fatigue [Not Recovered/Not Resolved]
  - Drug ineffective for unapproved indication [Not Recovered/Not Resolved]
